FAERS Safety Report 4738661-X (Version None)
Quarter: 2005Q3

REPORT INFORMATION
  Report Type: 
  Country: None (occurrence: None)
  Receive Date: 20050808
  Receipt Date: 20050808
  Transmission Date: 20060218
  Serious: Yes (Life-Threatening, Hospitalization, Disabling)
  Sender: FDA-Public Use
  Company Number: None

PATIENT
  Age: 37 Year
  Sex: Female
  Weight: 47.1741 kg

DRUGS (6)
  1. LEVAQUIN [Suspect]
     Indication: DIVERTICULITIS
     Dosage: 500MG   DAILY   ORAL
     Route: 048
     Dates: start: 20050708, end: 20050728
  2. LEVAQUIN [Suspect]
     Indication: DRUG HYPERSENSITIVITY
     Dosage: 500MG   DAILY   ORAL
     Route: 048
     Dates: start: 20050708, end: 20050728
  3. LEVAQUIN [Suspect]
     Indication: DIVERTICULITIS
     Dosage: 500MG   DAILY   ORAL
     Route: 048
     Dates: start: 20050723, end: 20050728
  4. LEVAQUIN [Suspect]
     Indication: DRUG HYPERSENSITIVITY
     Dosage: 500MG   DAILY   ORAL
     Route: 048
     Dates: start: 20050723, end: 20050728
  5. PREDNISONE [Concomitant]
  6. ASPIRIN [Concomitant]

REACTIONS (15)
  - ARTHRALGIA [None]
  - CONDITION AGGRAVATED [None]
  - DYSPNOEA [None]
  - HYPERSENSITIVITY [None]
  - JOINT STIFFNESS [None]
  - MYALGIA [None]
  - NAUSEA [None]
  - PAIN OF SKIN [None]
  - PALPITATIONS [None]
  - PARAESTHESIA [None]
  - PARAESTHESIA ORAL [None]
  - SALIVARY HYPERSECRETION [None]
  - SWOLLEN TONGUE [None]
  - SYSTEMIC LUPUS ERYTHEMATOSUS [None]
  - TENDON DISORDER [None]
